FAERS Safety Report 9720597 (Version 4)
Quarter: 2014Q1

REPORT INFORMATION
  Report Type: Report from Study
  Country: BR (occurrence: BR)
  Receive Date: 20131129
  Receipt Date: 20140220
  Transmission Date: 20141002
  Serious: Yes (Other)
  Sender: FDA-Public Use
  Company Number: PHHY2013BR134396

PATIENT
  Age: 63 Year
  Sex: Male
  Weight: 69 kg

DRUGS (3)
  1. SANDOSTATIN LAR [Suspect]
     Indication: NEUROENDOCRINE TUMOUR
     Dosage: 20 MG, EVERY 28 DAYS, 1 AMPOULE
     Dates: start: 201310
  2. AFINITOR [Suspect]
     Dosage: 10 MG, UNK
  3. OCTREOTIDE [Concomitant]
     Dosage: 60 MG, EVERY 60 DAYS
     Dates: start: 201301, end: 201307

REACTIONS (7)
  - Hepatic neoplasm [Recovering/Resolving]
  - Platelet count decreased [Recovered/Resolved]
  - Erythema [Recovered/Resolved]
  - Syncope [Unknown]
  - Flushing [Unknown]
  - Malaise [Unknown]
  - Pruritus [Recovered/Resolved]
